FAERS Safety Report 17065884 (Version 1)
Quarter: 2019Q4

REPORT INFORMATION
  Report Type: Report from Study
  Country: US (occurrence: US)
  Receive Date: 20191122
  Receipt Date: 20191122
  Transmission Date: 20200122
  Serious: Yes (Other)
  Sender: FDA-Public Use
  Company Number: US-BRISTOL-MYERS SQUIBB COMPANY-BMS-2019-006192

PATIENT
  Age: 61 Year
  Sex: Female
  Weight: 70 kg

DRUGS (19)
  1. APIXABAN [Suspect]
     Active Substance: APIXABAN
     Indication: DEEP VEIN THROMBOSIS
     Dosage: 10 MILLIGRAM, DAILY
     Route: 048
  2. GABAPENTIN. [Concomitant]
     Active Substance: GABAPENTIN
     Indication: PROPHYLAXIS
     Dosage: 300 MG, TID
     Route: 048
     Dates: start: 20181213
  3. APIXABAN [Suspect]
     Active Substance: APIXABAN
     Indication: PRODUCT USED FOR UNKNOWN INDICATION
     Dosage: 10 MG, BID
     Route: 048
     Dates: start: 20181228, end: 20190113
  4. ATORVASTATIN [Concomitant]
     Active Substance: ATORVASTATIN
     Indication: PROPHYLAXIS
     Dosage: 20 MG, QD
     Route: 048
     Dates: start: 20170313
  5. ROXICODONE [Concomitant]
     Active Substance: OXYCODONE HYDROCHLORIDE
     Indication: PROPHYLAXIS
     Dosage: 10 MG, PRN
     Route: 048
     Dates: start: 20180718
  6. AMLODIPINE [Concomitant]
     Active Substance: AMLODIPINE BESYLATE
     Indication: PROPHYLAXIS
     Dosage: 5 MG, QD
     Route: 048
     Dates: start: 20170301
  7. DEXAMETHASONE. [Concomitant]
     Active Substance: DEXAMETHASONE
     Indication: NEOPLASM MALIGNANT
     Dosage: 8 MG, OTHER
     Route: 048
     Dates: start: 20180426
  8. FOLIC ACID. [Concomitant]
     Active Substance: FOLIC ACID
     Indication: PROPHYLAXIS
     Dosage: 1 MG, QD
     Route: 048
     Dates: start: 20160621
  9. LEVOTHYROXINE. [Concomitant]
     Active Substance: LEVOTHYROXINE
     Indication: PROPHYLAXIS
     Dosage: 50 ?G, QD
     Route: 048
     Dates: start: 20160930
  10. ENOXAPARIN SODIUM. [Suspect]
     Active Substance: ENOXAPARIN SODIUM
     Indication: PROPHYLAXIS
     Dosage: 80 MILLIGRAM, BID
     Route: 058
     Dates: start: 20181228, end: 20190206
  11. CYCLOBENZAPRINE. [Concomitant]
     Active Substance: CYCLOBENZAPRINE
     Indication: PROPHYLAXIS
     Dosage: 5 MG, PRN
     Route: 048
     Dates: start: 20161207
  12. LORAZEPAM. [Concomitant]
     Active Substance: LORAZEPAM
     Indication: PROPHYLAXIS
     Dosage: 0.5 MG, PRN
     Route: 048
     Dates: start: 20181213
  13. MIRTAZAPINE. [Concomitant]
     Active Substance: MIRTAZAPINE
     Indication: PROPHYLAXIS
     Dosage: 15 MG, QD
     Route: 048
     Dates: start: 20180410
  14. LORATADINE. [Concomitant]
     Active Substance: LORATADINE
     Indication: PROPHYLAXIS
     Dosage: 10 MG, QD
     Route: 048
     Dates: start: 20181018
  15. OXYCONTIN [Concomitant]
     Active Substance: OXYCODONE HYDROCHLORIDE
     Indication: PROPHYLAXIS
     Dosage: 40 MG, TID
     Route: 048
     Dates: start: 20181115
  16. DOCUSATE [Concomitant]
     Active Substance: DOCUSATE
     Indication: PROPHYLAXIS
     Dosage: 100 MG, PRN
     Route: 048
     Dates: start: 20180419
  17. BEVACIZUMAB. [Concomitant]
     Active Substance: BEVACIZUMAB
     Indication: NEOPLASM MALIGNANT
     Dosage: 300 MG, OTHER
     Route: 042
     Dates: start: 20180628
  18. ALBUTEROL [SALBUTAMOL] [Concomitant]
     Active Substance: ALBUTEROL
     Indication: PROPHYLAXIS
     Dosage: 1 DF (=2 PUFF), PRN
     Route: 045
     Dates: start: 20170921
  19. BUDESONIDE;FORMOTEROL [Concomitant]
     Active Substance: BUDESONIDE\FORMOTEROL
     Indication: PROPHYLAXIS
     Dosage: 1DF=2 PUFF
     Route: 045
     Dates: start: 20180531

REACTIONS (2)
  - Overdose [Recovered/Resolved]
  - Accidental overdose [Recovered/Resolved]

NARRATIVE: CASE EVENT DATE: 20181228
